FAERS Safety Report 23795961 (Version 1)
Quarter: 2024Q2

REPORT INFORMATION
  Report Type: Spontaneous
  Country: US (occurrence: US)
  Receive Date: 20240429
  Receipt Date: 20240429
  Transmission Date: 20240715
  Serious: No
  Sender: FDA-Public Use
  Company Number: US-ANIPHARMA-2024-US-013125

PATIENT
  Age: 68 Year
  Sex: Female
  Weight: 81.65 kg

DRUGS (4)
  1. NEBIVOLOL HYDROCHLORIDE [Suspect]
     Active Substance: NEBIVOLOL HYDROCHLORIDE
     Indication: Hypertension
     Dosage: 1 TABLET (5 MG) DAILY FOR TWO TIME INTERVALS
     Route: 048
     Dates: start: 202310, end: 20240304
  2. CLARITIN [Concomitant]
     Active Substance: LORATADINE
  3. HYDROCHLOROTHIAZIDE [Concomitant]
     Active Substance: HYDROCHLOROTHIAZIDE
  4. ASPIRIN [Concomitant]
     Active Substance: ASPIRIN

REACTIONS (2)
  - Insomnia [Recovered/Resolved]
  - Feeling jittery [Recovered/Resolved]

NARRATIVE: CASE EVENT DATE: 20240226
